FAERS Safety Report 6177017-2 (Version None)
Quarter: 2009Q2

REPORT INFORMATION
  Report Type: 
  Country: None (occurrence: None)
  Receive Date: 20090501
  Receipt Date: 20090416
  Transmission Date: 20091009
  Serious: Yes (Hospitalization)
  Sender: FDA-Public Use
  Company Number: BR-GENENTECH-281798

PATIENT
  Age: 79 Year
  Sex: Female

DRUGS (1)
  1. MABTHERA [Suspect]
     Indication: NEOPLASM
     Dosage: 600 MG, UNK
     Route: 042
     Dates: start: 20090409, end: 20090409

REACTIONS (1)
  - RESPIRATORY FAILURE [None]
